FAERS Safety Report 21219049 (Version 7)
Quarter: 2024Q4

REPORT INFORMATION
  Report Type: Report from Study
  Country: JP (occurrence: JP)
  Receive Date: 20220816
  Receipt Date: 20241003
  Transmission Date: 20250115
  Serious: Yes (Hospitalization)
  Sender: SANOFI AVENTIS
  Company Number: JP-SA-2021SA261010

PATIENT
  Age: 2 Year
  Sex: Male
  Weight: 12.9 kg

DRUGS (27)
  1. INVESTIGATIONAL PRODUCT [Suspect]
     Active Substance: INVESTIGATIONAL PRODUCT
     Indication: Dermatitis atopic
     Dosage: UNK
     Route: 065
  2. BETAMETHASONE DIPROPIONATE [Concomitant]
     Active Substance: BETAMETHASONE DIPROPIONATE
     Indication: Dermatitis atopic
     Dosage: 3.34 G, QD
     Route: 061
     Dates: start: 20180226, end: 20200216
  3. BETAMETHASONE DIPROPIONATE [Concomitant]
     Active Substance: BETAMETHASONE DIPROPIONATE
     Indication: Food allergy
     Dosage: 1.7 G, Q3D
     Route: 061
     Dates: start: 20200217, end: 20210907
  4. BETAMETHASONE DIPROPIONATE [Concomitant]
     Active Substance: BETAMETHASONE DIPROPIONATE
     Dosage: 1 UNK, QW
     Route: 061
     Dates: start: 20210908, end: 20220715
  5. BETAMETHASONE DIPROPIONATE [Concomitant]
     Active Substance: BETAMETHASONE DIPROPIONATE
     Dosage: 1 APPLICATION, EVERY 10 DAYS
     Route: 061
     Dates: start: 20220716, end: 20230212
  6. BETAMETHASONE DIPROPIONATE [Concomitant]
     Active Substance: BETAMETHASONE DIPROPIONATE
     Dosage: 1 APPLICATION, AS NEEDED
     Route: 061
     Dates: start: 20230213
  7. HEPARINOID [Concomitant]
     Indication: Dermatitis atopic
     Dosage: 3.34 G, QD
     Route: 061
     Dates: start: 20180226, end: 20200216
  8. HEPARINOID [Concomitant]
     Dosage: 1.7 G, Q3D
     Route: 061
     Dates: start: 20200217, end: 20210907
  9. HEPARINOID [Concomitant]
     Dosage: 1 APPLICATION, QW
     Route: 061
     Dates: start: 20210908, end: 20220715
  10. HEPARINOID [Concomitant]
     Dosage: 1 APPLICATION, EVERY 10 DAYS
     Route: 061
     Dates: start: 20220716, end: 20230212
  11. HEPARINOID [Concomitant]
     Dosage: 1 APPLICATION, AS NEEDED
     Route: 061
     Dates: start: 20230213
  12. DIFLORASONE DIACETATE [Concomitant]
     Active Substance: DIFLORASONE DIACETATE
     Indication: Dermatitis atopic
     Dosage: 1 UNK, QD
     Route: 061
     Dates: start: 20181025, end: 20191106
  13. DIFLORASONE DIACETATE [Concomitant]
     Active Substance: DIFLORASONE DIACETATE
     Dosage: 0.3 G, BID
     Route: 061
     Dates: start: 20191107, end: 20200216
  14. DIFLORASONE DIACETATE [Concomitant]
     Active Substance: DIFLORASONE DIACETATE
     Dosage: 0.3 G, QD
     Route: 061
     Dates: start: 20200217, end: 20200706
  15. DIFLORASONE DIACETATE [Concomitant]
     Active Substance: DIFLORASONE DIACETATE
     Dosage: 1 UNK, PRN
     Route: 061
     Dates: start: 20200707, end: 20231231
  16. TACROLIMUS [Concomitant]
     Active Substance: TACROLIMUS
     Indication: Dermatitis atopic
     Dosage: 0.1 G, QD
     Route: 061
     Dates: start: 20181220, end: 20200216
  17. TACROLIMUS [Concomitant]
     Active Substance: TACROLIMUS
     Dosage: 0.1 G, BIW
     Route: 061
     Dates: start: 20200217, end: 20210907
  18. TACROLIMUS [Concomitant]
     Active Substance: TACROLIMUS
     Dosage: 1 UNK, QW
     Route: 061
     Dates: start: 20210908, end: 20220715
  19. TACROLIMUS [Concomitant]
     Active Substance: TACROLIMUS
     Dosage: 1 APPLICATION, EVERY 10 DAYS
     Route: 061
     Dates: start: 20220716, end: 20230212
  20. PETROLATUM [Concomitant]
     Active Substance: PETROLATUM
     Indication: Dermatitis atopic
     Dosage: 4 G, QD
     Route: 061
     Dates: start: 20181220
  21. BETAMETHASONE BUTYRATE PROPIONATE [Concomitant]
     Active Substance: BETAMETHASONE BUTYRATE PROPIONATE
     Indication: Dermatitis atopic
     Dosage: 0.5 G, Q3D
     Route: 061
     Dates: start: 20180416, end: 20191106
  22. BETAMETHASONE BUTYRATE PROPIONATE [Concomitant]
     Active Substance: BETAMETHASONE BUTYRATE PROPIONATE
     Dosage: 0.5 G, BIW
     Route: 061
     Dates: start: 20191107, end: 20201108
  23. BETAMETHASONE BUTYRATE PROPIONATE [Concomitant]
     Active Substance: BETAMETHASONE BUTYRATE PROPIONATE
     Dosage: 1 UNK, QW
     Route: 061
     Dates: start: 20201109, end: 20220715
  24. BETAMETHASONE BUTYRATE PROPIONATE [Concomitant]
     Active Substance: BETAMETHASONE BUTYRATE PROPIONATE
     Dosage: 1 APPLICATION, EVERY 10 DAYS
     Route: 061
     Dates: start: 20220716, end: 20220731
  25. RINDERON V [Concomitant]
     Active Substance: BETAMETHASONE VALERATE
     Indication: Dermatitis atopic
     Dosage: 1 APPLICATION, QD
     Route: 061
     Dates: start: 20230213, end: 20230228
  26. OLOPATADINE HYDROCHLORIDE [Concomitant]
     Active Substance: OLOPATADINE HYDROCHLORIDE
     Indication: Food allergy
     Dosage: 2.5 MG, PRN
     Route: 048
     Dates: start: 20210728, end: 20231003
  27. MONTELUKAST SODIUM [Concomitant]
     Active Substance: MONTELUKAST SODIUM
     Indication: Asthma
     Dosage: 4 MG, QD
     Route: 048
     Dates: start: 20190318, end: 202103

REACTIONS (3)
  - Food allergy [Recovered/Resolved]
  - Food allergy [Recovered/Resolved]
  - Food allergy [Recovered/Resolved]

NARRATIVE: CASE EVENT DATE: 20200414
